FAERS Safety Report 13672653 (Version 1)
Quarter: 2017Q2

REPORT INFORMATION
  Report Type: Spontaneous
  Country: SE (occurrence: SE)
  Receive Date: 20170621
  Receipt Date: 20170621
  Transmission Date: 20170830
  Serious: Yes (Hospitalization)
  Sender: FDA-Public Use
  Company Number: SE-CONCORDIA PHARMACEUTICALS INC.-GSH201706-003606

PATIENT
  Age: 89 Year
  Sex: Female

DRUGS (1)
  1. DIGOXIN. [Suspect]
     Active Substance: DIGOXIN
     Route: 048

REACTIONS (2)
  - Cardioactive drug level increased [Recovered/Resolved]
  - Altered state of consciousness [Recovered/Resolved]
